FAERS Safety Report 9416879 (Version 2)
Quarter: 2013Q3

REPORT INFORMATION
  Report Type: Spontaneous
  Country: DK (occurrence: SE)
  Receive Date: 20130724
  Receipt Date: 20130808
  Transmission Date: 20140515
  Serious: Yes (Other)
  Sender: FDA-Public Use
  Company Number: SE-FRI-1000046947

PATIENT
  Age: 58 Year
  Sex: Female

DRUGS (7)
  1. CITALOPRAM [Suspect]
     Indication: DEPRESSION
     Dosage: 20 MG
     Dates: start: 201305, end: 201305
  2. BRILIQUE [Suspect]
  3. TROMBYL [Suspect]
  4. PAMOL [Concomitant]
     Dates: start: 20121004
  5. LEVAXIN [Concomitant]
     Dates: start: 20121003
  6. TAMOXIFEN [Concomitant]
     Dates: start: 20121025
  7. FRAGMIN [Concomitant]
     Dates: start: 20121003

REACTIONS (3)
  - Gastritis haemorrhagic [Unknown]
  - Duodenitis [Unknown]
  - Diarrhoea [Unknown]
